FAERS Safety Report 6184404-5 (Version None)
Quarter: 2009Q2

REPORT INFORMATION
  Report Type: 
  Country: None (occurrence: None)
  Receive Date: 20090508
  Receipt Date: 20090430
  Transmission Date: 20091009
  Serious: Yes (Hospitalization)
  Sender: FDA-Public Use
  Company Number: B0571319A

PATIENT
  Sex: Female
  Weight: 31 kg

DRUGS (2)
  1. PAXIL [Suspect]
     Indication: DEPRESSION
     Dosage: 10MG PER DAY
     Route: 048
     Dates: start: 20090331, end: 20090406
  2. PAXIL [Suspect]
     Dosage: 20MG PER DAY
     Route: 048
     Dates: start: 20090407, end: 20090417

REACTIONS (5)
  - CONVULSION [None]
  - CRYING [None]
  - DYSTHYMIC DISORDER [None]
  - INAPPROPRIATE ANTIDIURETIC HORMONE SECRETION [None]
  - RESPIRATION ABNORMAL [None]
